FAERS Safety Report 14803427 (Version 2)
Quarter: 2018Q2

REPORT INFORMATION
  Report Type: Report from Study
  Country: AU (occurrence: AU)
  Receive Date: 20180425
  Receipt Date: 20180508
  Transmission Date: 20180711
  Serious: Yes (Death)
  Sender: FDA-Public Use
  Company Number: AU-ROCHE-2112420

PATIENT
  Age: 95 Year
  Sex: Male
  Weight: 70 kg

DRUGS (2)
  1. TENECTEPLASE [Suspect]
     Active Substance: TENECTEPLASE
     Indication: ISCHAEMIC STROKE
     Route: 042
     Dates: start: 20180228, end: 20180228
  2. TENECTEPLASE [Suspect]
     Active Substance: TENECTEPLASE
     Dosage: DAILY DOSE AS PER THE PROTOCOL. 40MG IN 8ML/17.5MG REQUIRED/3.5ML (17.5 MG,1 IN 1 D)?DURATION: DATE
     Route: 042
     Dates: start: 20180228, end: 20180228

REACTIONS (1)
  - Multiple organ dysfunction syndrome [Fatal]

NARRATIVE: CASE EVENT DATE: 20180307
